FAERS Safety Report 4498323-3 (Version None)
Quarter: 2004Q4

REPORT INFORMATION
  Report Type: 
  Country: None (occurrence: None)
  Receive Date: 20041104
  Receipt Date: 20041020
  Transmission Date: 20050328
  Serious: Yes (Hospitalization)
  Sender: FDA-Public Use
  Company Number: 2004AP03913

PATIENT
  Age: 68 Year
  Sex: Male

DRUGS (3)
  1. CASODEX [Suspect]
     Indication: PROSTATE CANCER
     Dosage: 80 MG DAILY PO
     Route: 048
     Dates: start: 20040416, end: 20040601
  2. HARNAL [Concomitant]
  3. NORVASC [Concomitant]

REACTIONS (4)
  - ARTHRITIS [None]
  - CELLULITIS [None]
  - CONDITION AGGRAVATED [None]
  - GOUT [None]
